FAERS Safety Report 6992890-3 (Version None)
Quarter: 2010Q3

REPORT INFORMATION
  Report Type: 
  Country: None (occurrence: None)
  Receive Date: 20100917
  Receipt Date: 20100909
  Transmission Date: 20110219
  Serious: Yes (Death)
  Sender: FDA-Public Use
  Company Number: GXKR2010CI09440

PATIENT
  Age: 32 Year
  Sex: Male

DRUGS (4)
  1. RIFAMPICIN [Suspect]
     Indication: TUBERCULOSIS
     Dosage: UNK
     Route: 065
     Dates: start: 20050824
  2. ISONIAZID [Suspect]
     Indication: TUBERCULOSIS
     Dosage: UNK
     Route: 065
     Dates: start: 20050824
  3. PYRAZINAMIDE [Suspect]
     Indication: TUBERCULOSIS
     Dosage: UNK
     Route: 065
     Dates: start: 20050824
  4. ETHAMBUTOL (NGX) [Suspect]
     Indication: TUBERCULOSIS
     Dosage: UNK
     Route: 065
     Dates: start: 20050824

REACTIONS (7)
  - ANAEMIA [None]
  - ASTHENIA [None]
  - GENERAL PHYSICAL HEALTH DETERIORATION [None]
  - HYPONATRAEMIA [None]
  - OCULAR ICTERUS [None]
  - SKIN LESION [None]
  - TOXIC EPIDERMAL NECROLYSIS [None]
